FAERS Safety Report 9518412 (Version 2)
Quarter: 2013Q3

REPORT INFORMATION
  Report Type: Spontaneous
  Country: BR (occurrence: BR)
  Receive Date: 20130912
  Receipt Date: 20130912
  Transmission Date: 20140515
  Serious: Yes (Other)
  Sender: FDA-Public Use
  Company Number: BR-AMGEN-BRASP2012039421

PATIENT
  Age: 45 Year
  Sex: Female
  Weight: 60 kg

DRUGS (11)
  1. ENBREL [Suspect]
     Indication: RHEUMATOID ARTHRITIS
     Dosage: 25 MG, 2X/WEEK
     Route: 065
     Dates: start: 201201, end: 2012
  2. ENBREL [Suspect]
     Dosage: 50 MG, QWK
     Route: 058
     Dates: start: 20120405
  3. METHOTREXATE [Concomitant]
     Indication: RHEUMATOID ARTHRITIS
     Dosage: UNK
     Dates: start: 2008
  4. PREDNISONE [Concomitant]
     Indication: RHEUMATOID ARTHRITIS
     Dosage: UNK
     Dates: start: 2008
  5. PARACETAMOL [Concomitant]
     Indication: PAIN
     Dosage: UNK
     Dates: start: 2008
  6. PARACETAMOL [Concomitant]
     Indication: PYREXIA
  7. PARACETAMOL [Concomitant]
     Indication: RHEUMATOID ARTHRITIS
  8. AMITRIPTYLINE [Concomitant]
     Indication: FIBROMYALGIA
     Dosage: UNK
     Dates: start: 2007
  9. IMIPRA [Concomitant]
     Indication: FIBROMYALGIA
     Dosage: UNK
     Dates: start: 2007
  10. SYNTHROID [Concomitant]
     Indication: HYPOTHYROIDISM
     Dosage: UNK
     Dates: end: 201203
  11. DALMADORM [Concomitant]
     Indication: DEPRESSION
     Dosage: UNK ( ^HOFFMAN^)
     Dates: start: 2005

REACTIONS (15)
  - Local swelling [Unknown]
  - Injection site erythema [Unknown]
  - Cellulitis [Unknown]
  - Pain [Not Recovered/Not Resolved]
  - Joint swelling [Not Recovered/Not Resolved]
  - Atrophy [Not Recovered/Not Resolved]
  - Erythema [Unknown]
  - Pyrexia [Not Recovered/Not Resolved]
  - Pruritus [Unknown]
  - Wrong technique in drug usage process [Unknown]
  - Injection site swelling [Not Recovered/Not Resolved]
  - Injection site pruritus [Not Recovered/Not Resolved]
  - Injection site induration [Unknown]
  - Injection site pain [Not Recovered/Not Resolved]
  - Injection site vesicles [Unknown]
